FAERS Safety Report 7203398-4 (Version None)
Quarter: 2010Q4

REPORT INFORMATION
  Report Type: 
  Country: None (occurrence: None)
  Receive Date: 20101220
  Receipt Date: 20101213
  Transmission Date: 20110411
  Serious: Yes (Other)
  Sender: FDA-Public Use
  Company Number: DSU-2010-06892

PATIENT
  Age: 61 Year
  Sex: Female
  Weight: 71.6683 kg

DRUGS (11)
  1. EVOXAC IGRAM, CAPSULE) (CEVIMELINE HYDROCHLORIDE) [Suspect]
     Indication: DRY MOUTH
     Dosage: 90 MG (30 MG,TID),PER ORAL
     Route: 048
     Dates: start: 20000401
  2. BUPROPION HYDROCHLORIDE [Suspect]
     Indication: PRODUCT USED FOR UNKNOWN INDICATION
     Dosage: 300 MG (300 MG,QD),PER ORAL
     Route: 048
     Dates: start: 20010101
  3. PRILOSEC (OMEPRAZOLE) (OMEPRAZOLE) [Concomitant]
  4. TRILEPTAL (OXCARBAZEPINE) (OXCARBAZEPINE) [Concomitant]
  5. MINOCYCLINE (MINOCYCLINE) (MINOCYCLINE) [Concomitant]
  6. AMLODIPINE [Concomitant]
  7. EFFEXOR (VENLAFAXINE) (VENLAFAXINE) [Concomitant]
  8. SPIRONOLACTONE [Concomitant]
  9. SIMVASTATIN [Concomitant]
  10. TOPIRAMATE (TOPIRAMATE) (TOPIRAMATE) [Concomitant]
  11. TORADOL (KETOROLAC TROMETHAMINE) (KETOROLAC TROMETHAMINE) [Concomitant]

REACTIONS (4)
  - ABDOMINAL RIGIDITY [None]
  - DRUG EFFECT DECREASED [None]
  - PANCREATIC NEOPLASM [None]
  - SUPRAVENTRICULAR EXTRASYSTOLES [None]
